FAERS Safety Report 10750544 (Version 1)
Quarter: 2015Q1

REPORT INFORMATION
  Report Type: Spontaneous
  Country: TR (occurrence: TR)
  Receive Date: 20150130
  Receipt Date: 20150130
  Transmission Date: 20150721
  Serious: Yes (Other)
  Sender: FDA-Public Use
  Company Number: TR-AUROBINDO-AUR-APL-2015-00546

PATIENT
  Age: 16 Year
  Sex: Female

DRUGS (7)
  1. BUSULFAN [Suspect]
     Active Substance: BUSULFAN
     Indication: ACUTE MYELOID LEUKAEMIA
     Dosage: 3.2 MG/KG, DAILY, ON DAYS 8 TO 5
     Route: 042
  2. VALPROIC ACID /00228502/ [Suspect]
     Active Substance: VALPROATE SODIUM
     Indication: EPILEPSY
     Dosage: 26 MG/KG, DAILY
     Route: 065
  3. LEVETIRACETAM. [Suspect]
     Active Substance: LEVETIRACETAM
     Dosage: 25 MG/KG, DAILY
     Route: 065
  4. LEVETIRACETAM. [Suspect]
     Active Substance: LEVETIRACETAM
     Dosage: 40 MG/KG, DAILY
     Route: 065
  5. LEVETIRACETAM. [Suspect]
     Active Substance: LEVETIRACETAM
     Indication: EPILEPSY
     Dosage: 13 MG/KG, DAILY
     Route: 065
  6. MESNA. [Concomitant]
     Active Substance: MESNA
     Indication: ACUTE MYELOID LEUKAEMIA
     Dosage: 60 MG/KG, DAILY,ON DAYS 3 TO 2)
     Route: 065
  7. CYCLOPHOSPHAMIDE. [Concomitant]
     Active Substance: CYCLOPHOSPHAMIDE
     Indication: ACUTE MYELOID LEUKAEMIA
     Dosage: UNK
     Route: 065

REACTIONS (4)
  - Generalised tonic-clonic seizure [Recovered/Resolved]
  - Loss of consciousness [Unknown]
  - Epilepsy [Recovered/Resolved]
  - Urinary incontinence [Unknown]
